FAERS Safety Report 9122666 (Version 1)
Quarter: 2013Q1

REPORT INFORMATION
  Report Type: Spontaneous
  Country: US (occurrence: None)
  Receive Date: 20130225
  Receipt Date: 20130225
  Transmission Date: 20140127
  Serious: No
  Sender: FDA-Public Use
  Company Number: None

PATIENT
  Sex: Female

DRUGS (2)
  1. GILDESS FE 1/20 MCG QUALITEST [Suspect]
     Indication: ORAL CONTRACEPTION
     Dosage: 1 DAILY PO
     Route: 048
     Dates: start: 20120219, end: 20130222
  2. MICROGESTIN [Concomitant]

REACTIONS (3)
  - Drug ineffective [None]
  - Vaginal haemorrhage [None]
  - Muscle spasms [None]
